FAERS Safety Report 23963598 (Version 1)
Quarter: 2024Q2

REPORT INFORMATION
  Report Type: Report from Study
  Country: GB (occurrence: GB)
  Receive Date: 20240611
  Receipt Date: 20240611
  Transmission Date: 20240716
  Serious: Yes (Other)
  Sender: FDA-Public Use
  Company Number: GB-002147023-NVSC2020GB253952

PATIENT
  Sex: Male

DRUGS (1)
  1. OMNITROPE [Suspect]
     Active Substance: SOMATROPIN
     Indication: Hypopituitarism
     Dosage: 0.15 MG, QD (STRENGTH: 5.5MG/1.5ML, ROUTE: AS DIRECTED)
     Route: 058

REACTIONS (2)
  - Prostate cancer [Unknown]
  - Product dose omission issue [Unknown]
